FAERS Safety Report 9056219 (Version 3)
Quarter: 2013Q1

REPORT INFORMATION
  Report Type: Report from Study
  Country: DE (occurrence: DE)
  Receive Date: 20130205
  Receipt Date: 20130225
  Transmission Date: 20140127
  Serious: Yes (Hospitalization)
  Sender: FDA-Public Use
  Company Number: DE-AMGEN-DEUCT2013006302

PATIENT
  Age: 74 Year
  Sex: Female
  Weight: 80 kg

DRUGS (8)
  1. ETANERCEPT [Suspect]
     Indication: PSORIATIC ARTHROPATHY
     Dosage: 50 MG, QWK
     Route: 058
     Dates: start: 20110610, end: 20111111
  2. ETANERCEPT [Suspect]
     Indication: PSORIASIS
  3. OMEP                               /00661201/ [Concomitant]
     Dosage: 20 UNK, 1X/DAY
  4. HYDROCHLOROTHIAZIDE [Concomitant]
     Dosage: 12.5 UNK, 1X/DAY
  5. LORZAAR [Concomitant]
     Dosage: 75 UNK, 1X/DAY
  6. VERAPAMIL                          /00014302/ [Concomitant]
     Dosage: 120 MG, 2X/DAY
  7. TELFAST [Concomitant]
     Dosage: 180 UNK, AS NEEDED
  8. CALCIUM + VITAMIN D                /01483701/ [Concomitant]
     Dosage: 1 DF, 2X/DAY

REACTIONS (1)
  - Pruritus generalised [Not Recovered/Not Resolved]
